FAERS Safety Report 7336378-9 (Version None)
Quarter: 2011Q1

REPORT INFORMATION
  Report Type: 
  Country: None (occurrence: None)
  Receive Date: 20110307
  Receipt Date: 20110224
  Transmission Date: 20110831
  Serious: Yes (Other)
  Sender: FDA-Public Use
  Company Number: DE-PFIZER INC-2010153385

PATIENT
  Age: 58 Year
  Sex: Male
  Weight: 96 kg

DRUGS (4)
  1. EUTHYROX [Concomitant]
     Dosage: 175 UG, UNK
  2. PANTOZOL [Suspect]
     Indication: GASTROOESOPHAGEAL REFLUX DISEASE
     Dosage: 20 MG, DAILY
     Route: 048
     Dates: start: 20000101
  3. SIMVASTATIN [Concomitant]
     Dosage: 20 MG, UNK
  4. ATACAND [Concomitant]
     Dosage: 8 MG, UNK

REACTIONS (1)
  - POLYNEUROPATHY [None]
